FAERS Safety Report 4495959-0 (Version None)
Quarter: 2004Q4

REPORT INFORMATION
  Report Type: 
  Country: None (occurrence: None)
  Receive Date: 20040927
  Receipt Date: 20040512
  Transmission Date: 20050328
  Serious: No
  Sender: FDA-Public Use
  Company Number: USA040566805

PATIENT
  Age: 44 Year
  Sex: Male
  Weight: 91 kg

DRUGS (2)
  1. STRATTERA [Suspect]
     Indication: ATTENTION DEFICIT/HYPERACTIVITY DISORDER
     Dosage: 30 MG AT BEDTIME
     Dates: start: 20040413
  2. DEPAKOTE [Concomitant]

REACTIONS (5)
  - EJACULATION DISORDER [None]
  - PENILE PAIN [None]
  - PENIS DISORDER [None]
  - RETROGRADE EJACULATION [None]
  - URINARY HESITATION [None]
